FAERS Safety Report 9878809 (Version 1)
Quarter: 2014Q1

REPORT INFORMATION
  Report Type: Spontaneous
  Country: US (occurrence: US)
  Receive Date: 20140206
  Receipt Date: 20140206
  Transmission Date: 20141002
  Serious: No
  Sender: FDA-Public Use
  Company Number: US-ALLERGAN-1310082US

PATIENT
  Age: 74 Year
  Sex: Female

DRUGS (12)
  1. BOTOX [Suspect]
     Indication: BLEPHAROSPASM
  2. BOTOX [Suspect]
     Dosage: UNK
  3. DILTIAZEM [Concomitant]
     Indication: HYPOTENSION
     Dosage: UNK
     Route: 048
  4. VALTREX [Concomitant]
     Indication: HERPES VIRUS INFECTION
     Dosage: 500 MG, QD
     Route: 048
  5. LEVOTHYROXINE [Concomitant]
     Indication: HYPOTHYROIDISM
     Dosage: 0.75 MG, QD
     Route: 048
  6. PROVIGIL                           /01265601/ [Concomitant]
     Indication: SLEEP APNOEA SYNDROME
     Dosage: 200 MG, QD
     Route: 048
  7. WELLBUTRIN [Concomitant]
     Indication: ANXIETY
     Dosage: 150 MG, QD
     Route: 048
  8. ENTOCORT [Concomitant]
     Indication: GASTROINTESTINAL DISORDER
     Dosage: 3 MG, PRN
     Route: 048
  9. LOTEMAX [Concomitant]
     Indication: DRY EYE
     Dosage: UNK UNK, QID
     Route: 047
  10. LOTEMAX GEL [Concomitant]
     Indication: DRY EYE
     Dosage: UNK
     Route: 047
  11. OMEGA 3                            /01333901/ [Concomitant]
     Indication: SUPPLEMENTATION THERAPY
     Dosage: UNK
  12. OASIS PLUS [Concomitant]
     Indication: EYE LUBRICATION THERAPY
     Dosage: UNK UNK, PRN
     Route: 047

REACTIONS (3)
  - Lagophthalmos [Unknown]
  - Dry eye [Unknown]
  - Therapeutic response decreased [Unknown]
